FAERS Safety Report 4473856-4 (Version None)
Quarter: 2004Q4

REPORT INFORMATION
  Report Type: 
  Country: None (occurrence: None)
  Receive Date: 20041008
  Receipt Date: 20041008
  Transmission Date: 20050328
  Serious: Yes (Hospitalization)
  Sender: FDA-Public Use
  Company Number: None

PATIENT
  Age: 82 Year
  Sex: Male
  Weight: 92 kg

DRUGS (11)
  1. ACETAMINOPHEN AND CODEINE PHOSPHATE #3 [Suspect]
     Indication: POLYNEUROPATHY
     Dosage: 300 MG/30 MG TID PRN ORAL
     Route: 048
     Dates: start: 20040908, end: 20040914
  2. AMITRIPTYLINE HCL [Suspect]
     Indication: POLYNEUROPATHY
     Dosage: 10 MG HS ORAL
     Route: 048
     Dates: start: 20040910, end: 20040914
  3. LOVASTATIN [Concomitant]
  4. IMDUR [Concomitant]
  5. NPH INSULIN [Concomitant]
  6. FERROUS SULFATE TAB [Concomitant]
  7. ATENOLOL [Concomitant]
  8. IRBESARTAN [Concomitant]
  9. HYDRALAZINE HCL [Concomitant]
  10. FUROSEMIDE [Concomitant]
  11. PROCRIT [Concomitant]

REACTIONS (4)
  - ANURIA [None]
  - BENIGN PROSTATIC HYPERPLASIA [None]
  - CONSTIPATION [None]
  - URINARY TRACT OBSTRUCTION [None]
